FAERS Safety Report 19191700 (Version 1)
Quarter: 2021Q2

REPORT INFORMATION
  Report Type: Report from Study
  Country: US (occurrence: US)
  Receive Date: 20210428
  Receipt Date: 20210428
  Transmission Date: 20210717
  Serious: Yes (Hospitalization)
  Sender: FDA-Public Use
  Company Number: US-ADAMAS PHARMA, LLC-2020ADA03018

PATIENT
  Age: 68 Year
  Sex: Female
  Weight: 68.03 kg

DRUGS (17)
  1. GOCOVRI [Suspect]
     Active Substance: AMANTADINE
     Dosage: 137 MG 1X/DAY, AT BEDTIME
     Route: 048
     Dates: start: 20190109
  2. CARVEDILOL. [Suspect]
     Active Substance: CARVEDILOL
     Dosage: 12.5 MG, 1X/DAY
     Dates: start: 202104, end: 202104
  3. CARVEDILOL. [Suspect]
     Active Substance: CARVEDILOL
     Dosage: 6.25 MG, 2X/DAY
     Dates: start: 202104
  4. CARVEDILOL. [Suspect]
     Active Substance: CARVEDILOL
     Dosage: 6.25 MG, 2X/DAY
     Dates: end: 202104
  5. FUROSEMIDE. [Concomitant]
     Active Substance: FUROSEMIDE
     Dosage: 40 MG, 1X/DAY IN THE MORNING
  6. FUROSEMIDE. [Concomitant]
     Active Substance: FUROSEMIDE
  7. SINEMET CR [Concomitant]
     Active Substance: CARBIDOPA\LEVODOPA
  8. IRON [Concomitant]
     Active Substance: IRON
  9. GOCOVRI [Suspect]
     Active Substance: AMANTADINE
     Dosage: 274 MG, 1X/DAY, AT BEDTIME
     Route: 048
     Dates: start: 20190102, end: 20190106
  10. CARVEDILOL. [Concomitant]
     Active Substance: CARVEDILOL
  11. ZELAPAR [Concomitant]
     Active Substance: SELEGILINE HYDROCHLORIDE
     Dosage: 1.25 MG, 1X/DAY IN THE MORNING
  12. GOCOVRI [Suspect]
     Active Substance: AMANTADINE
     Indication: DYSKINESIA
     Dosage: 137 MG, 1X/DAY, AT BEDTIME
     Route: 048
     Dates: start: 20181226, end: 20190101
  13. ALBUTEROL SULFATE. [Concomitant]
     Active Substance: ALBUTEROL SULFATE
  14. BABY ASPIRIN [Concomitant]
     Active Substance: ASPIRIN
     Dosage: UNK, 1X/DAY
  15. SINEMET CR [Concomitant]
     Active Substance: CARBIDOPA\LEVODOPA
     Dosage: 0.5 DOSAGE UNITS, 3X/DAY
  16. ENTRESTO [Concomitant]
     Active Substance: SACUBITRIL\VALSARTAN
  17. PANTOPRAZOLE [Concomitant]
     Active Substance: PANTOPRAZOLE
     Dosage: 40 MG, 2X/DAY

REACTIONS (11)
  - Acute kidney injury [Unknown]
  - Blood pressure fluctuation [Recovering/Resolving]
  - Product dose omission issue [Recovered/Resolved]
  - Dehydration [Recovered/Resolved]
  - Body temperature decreased [Unknown]
  - Urinary tract infection [Recovered/Resolved]
  - Muscle rigidity [Not Recovered/Not Resolved]
  - Hypotension [Recovering/Resolving]
  - Product administration error [Recovered/Resolved]
  - Urosepsis [Recovered/Resolved]
  - Fall [Recovered/Resolved]

NARRATIVE: CASE EVENT DATE: 20201201
